FAERS Safety Report 14223979 (Version 1)
Quarter: 2017Q4

REPORT INFORMATION
  Report Type: Spontaneous
  Country: US (occurrence: US)
  Receive Date: 20171122
  Receipt Date: 20171122
  Transmission Date: 20180321
  Serious: No
  Sender: FDA-Public Use
  Company Number: None

PATIENT
  Age: 46 Year
  Sex: Male

DRUGS (2)
  1. BUPROPION SR [Suspect]
     Active Substance: BUPROPION HYDROCHLORIDE
     Route: 048
     Dates: start: 20171016, end: 20171122
  2. TOPIRAMATE. [Concomitant]
     Active Substance: TOPIRAMATE

REACTIONS (8)
  - Oral pain [None]
  - Mouth swelling [None]
  - Agitation [None]
  - Drug ineffective [None]
  - Anxiety [None]
  - Lip swelling [None]
  - Oral discomfort [None]
  - Eating disorder [None]
